FAERS Safety Report 7073827-8 (Version None)
Quarter: 2010Q4

REPORT INFORMATION
  Report Type: 
  Country: None (occurrence: None)
  Receive Date: 20101029
  Receipt Date: 20100820
  Transmission Date: 20110411
  Serious: No
  Sender: FDA-Public Use
  Company Number: A0876980A

PATIENT
  Age: 69 Year
  Sex: Female

DRUGS (10)
  1. ADVAIR DISKUS 100/50 [Suspect]
     Indication: ASTHMA
     Dosage: 1PUFF TWICE PER DAY
     Route: 055
     Dates: start: 20010701
  2. XOPENEX [Concomitant]
  3. NIFEDIPINE [Concomitant]
  4. LAMICTAL [Concomitant]
  5. STRATTERA [Concomitant]
  6. TRIAMTERENE AND HYDROCHLOROTHIAZIDE [Concomitant]
  7. FAMOTIDINE [Concomitant]
  8. METOCLOPRAMINE [Concomitant]
  9. SINGULAIR [Concomitant]
  10. FEXOFENADINE HCL [Concomitant]

REACTIONS (1)
  - OROPHARYNGEAL PAIN [None]
